FAERS Safety Report 6510234-8 (Version None)
Quarter: 2009Q4

REPORT INFORMATION
  Report Type: 
  Country: None (occurrence: None)
  Receive Date: 20091217
  Receipt Date: 20091209
  Transmission Date: 20100525
  Serious: Yes (Death)
  Sender: FDA-Public Use
  Company Number: 2009SP034117

PATIENT
  Age: 72 Year
  Sex: Female

DRUGS (12)
  1. MIRTAZAPINE [Suspect]
     Indication: DEPRESSION
     Dosage: 15 MG;QD;PO ; ONCE
     Route: 048
     Dates: start: 20091022, end: 20091022
  2. MIRTAZAPINE [Suspect]
     Indication: DEPRESSION
     Dosage: 15 MG;QD;PO ; ONCE
     Route: 048
     Dates: start: 20091013, end: 20091023
  3. FLUNITRAZEPAM [Concomitant]
  4. TRIAZOLAM [Concomitant]
  5. BORTIZOLAM [Concomitant]
  6. NITRAZEPAM [Concomitant]
  7. MILNACIPRAN HYDROCHLORIDE [Concomitant]
  8. SULPIRIDE [Concomitant]
  9. ALPRAZOLAM [Concomitant]
  10. FAMOTIDINE [Concomitant]
  11. CLARITHROMYCIN [Concomitant]
  12. AMBROXOL HYDROCHLORIDE [Concomitant]

REACTIONS (4)
  - FLUID INTAKE REDUCED [None]
  - HYPOPHAGIA [None]
  - OVERDOSE [None]
  - PNEUMONIA BACTERIAL [None]
